FAERS Safety Report 10157263 (Version 1)
Quarter: 2014Q2

REPORT INFORMATION
  Report Type: Spontaneous
  Country: GB (occurrence: GB)
  Receive Date: 20140507
  Receipt Date: 20140507
  Transmission Date: 20141212
  Serious: Yes (Other)
  Sender: FDA-Public Use
  Company Number: GB-IPSEN BIOPHARMACEUTICALS, INC.-2014-2149

PATIENT
  Sex: Male

DRUGS (1)
  1. SOMATULINE LA [Suspect]
     Indication: NEUROENDOCRINE TUMOUR
     Dosage: NOT REPORTED
     Route: 065

REACTIONS (6)
  - Lethargy [Unknown]
  - Condition aggravated [Unknown]
  - Bone pain [Unknown]
  - Mastication disorder [Unknown]
  - Fatigue [Unknown]
  - Pain [Unknown]
